FAERS Safety Report 22181403 (Version 1)
Quarter: 2023Q2

REPORT INFORMATION
  Report Type: Spontaneous
  Country: US (occurrence: US)
  Receive Date: 20230406
  Receipt Date: 20230406
  Transmission Date: 20230721
  Serious: No
  Sender: FDA-Public Use
  Company Number: US-Ipsen Biopharmaceuticals, Inc.-2023-07654

PATIENT
  Age: 47 Year
  Sex: Female

DRUGS (5)
  1. DYSPORT [Suspect]
     Active Substance: ABOBOTULINUMTOXINA
     Indication: Skin cosmetic procedure
     Dosage: 5 INJECTION POINTS IN OF 6 U IN UPPER FOREHEAD, 3 INJECTION IN GLABELLA OF 12U EACH, 2 INJECTION POI
     Route: 065
     Dates: start: 20230310, end: 20230310
  2. DYSPORT [Suspect]
     Active Substance: ABOBOTULINUMTOXINA
     Indication: Skin wrinkling
  3. DYSPORT [Suspect]
     Active Substance: ABOBOTULINUMTOXINA
     Indication: Skin wrinkling
  4. DYSPORT [Suspect]
     Active Substance: ABOBOTULINUMTOXINA
     Indication: Skin wrinkling
  5. DYSPORT [Suspect]
     Active Substance: ABOBOTULINUMTOXINA
     Indication: Off label use

REACTIONS (3)
  - Inflammation [Recovering/Resolving]
  - Swelling [Unknown]
  - Off label use [Unknown]

NARRATIVE: CASE EVENT DATE: 20230323
